FAERS Safety Report 5607074-0 (Version None)
Quarter: 2008Q1

REPORT INFORMATION
  Report Type: 
  Country: None (occurrence: None)
  Receive Date: 20080129
  Receipt Date: 20080117
  Transmission Date: 20080703
  Serious: Yes (Other)
  Sender: FDA-Public Use
  Company Number: US-PFIZER INC-2004089797

PATIENT
  Sex: Male
  Weight: 97.5 kg

DRUGS (4)
  1. DILANTIN [Suspect]
     Indication: EPILEPSY
     Dosage: DAILY DOSE:300MG
     Route: 048
  2. DILANTIN [Suspect]
     Dosage: DAILY DOSE:300MG
     Route: 048
  3. ALL OTHER THERAPEUTIC PRODUCTS [Suspect]
  4. VITAMINS [Concomitant]
     Route: 065

REACTIONS (9)
  - CEREBROVASCULAR ACCIDENT [None]
  - CHOKING [None]
  - COMA [None]
  - EYE PAIN [None]
  - FALL [None]
  - FEELING ABNORMAL [None]
  - FEELING JITTERY [None]
  - HEADACHE [None]
  - MEMORY IMPAIRMENT [None]
